FAERS Safety Report 6702152-7 (Version None)
Quarter: 2010Q2

REPORT INFORMATION
  Report Type: 
  Country: None (occurrence: None)
  Receive Date: 20100429
  Receipt Date: 20100422
  Transmission Date: 20101027
  Serious: Yes (Life-Threatening, Hospitalization)
  Sender: FDA-Public Use
  Company Number: B0650188A

PATIENT
  Sex: Female

DRUGS (4)
  1. ALLI [Suspect]
     Dates: start: 20100201, end: 20100401
  2. IBUPROFEN [Concomitant]
     Indication: DRUG USE FOR UNKNOWN INDICATION
     Route: 048
     Dates: end: 20100401
  3. EUPHYTOSE [Concomitant]
     Indication: DRUG USE FOR UNKNOWN INDICATION
     Route: 048
     Dates: start: 20100201, end: 20100401
  4. RHINADVIL [Concomitant]
     Indication: DRUG USE FOR UNKNOWN INDICATION
     Route: 048
     Dates: start: 20100201

REACTIONS (11)
  - ABDOMINAL DISTENSION [None]
  - ASCITES [None]
  - ASTERIXIS [None]
  - CELL DEATH [None]
  - ENCEPHALOPATHY [None]
  - HEPATIC ENZYME INCREASED [None]
  - HEPATIC NECROSIS [None]
  - HEPATITIS ACUTE [None]
  - HEPATITIS FULMINANT [None]
  - JAUNDICE [None]
  - VARICES OESOPHAGEAL [None]
